FAERS Safety Report 20884287 (Version 1)
Quarter: 2022Q2

REPORT INFORMATION
  Report Type: Spontaneous
  Country: ES (occurrence: ES)
  Receive Date: 20220527
  Receipt Date: 20220527
  Transmission Date: 20220721
  Serious: Yes (Hospitalization, Other)
  Sender: FDA-Public Use
  Company Number: None

PATIENT

DRUGS (1)
  1. SOTROVIMAB [Suspect]
     Active Substance: SOTROVIMAB
     Indication: COVID-19
     Dosage: 20 ML (TOTAL) (500 MG SINGLE DOSE IN 100 ML OF PHYSIOLOGICAL SERUM)
     Route: 041
     Dates: start: 20220413, end: 20220413

REACTIONS (2)
  - Generalised tonic-clonic seizure [Recovered/Resolved]
  - Product administration error [Recovered/Resolved]

NARRATIVE: CASE EVENT DATE: 20220413
